FAERS Safety Report 10553884 (Version 2)
Quarter: 2014Q4

REPORT INFORMATION
  Report Type: Spontaneous
  Country: DE (occurrence: DE)
  Receive Date: 20141030
  Receipt Date: 20141030
  Transmission Date: 20150529
  Serious: Yes (Hospitalization, Other)
  Sender: FDA-Public Use
  Company Number: DE-009507513-1410DEU006394

PATIENT
  Sex: Male

DRUGS (3)
  1. PANTOPRAZOLE [Concomitant]
     Active Substance: PANTOPRAZOLE SODIUM
     Indication: GASTRITIS EROSIVE
     Dosage: 40 MG ONCE DAILY
  2. IBUPROFEN. [Concomitant]
     Active Substance: IBUPROFEN
     Dosage: MONDAYS, WEDNESDAYS AND FRIDAYS, ONE TABLET IN THE EVENING AND ON TUESDAYS, THURSDAYS AND SATURDAYS
  3. INTRON A [Suspect]
     Active Substance: INTERFERON ALFA-2B
     Indication: MALIGNANT MELANOMA
     Dosage: 3 MILLIONS IE, THREE TIMES WEEKLY
     Dates: start: 20140423

REACTIONS (3)
  - Metastases to lymph nodes [Unknown]
  - Pulmonary embolism [Recovered/Resolved]
  - Seborrhoeic dermatitis [Unknown]

NARRATIVE: CASE EVENT DATE: 20141011
